FAERS Safety Report 10088110 (Version 1)
Quarter: 2014Q2

REPORT INFORMATION
  Report Type: Report from Study
  Country: FR (occurrence: FR)
  Receive Date: 20140421
  Receipt Date: 20140421
  Transmission Date: 20141212
  Serious: Yes (Hospitalization)
  Sender: FDA-Public Use
  Company Number: FR-ROCHE-1381881

PATIENT
  Age: 58 Year
  Sex: Female

DRUGS (5)
  1. RITUXIMAB [Suspect]
     Indication: RHEUMATOID ARTHRITIS
     Dosage: FREQUENCY : DAY 1 AND DAY 15.
     Route: 042
     Dates: start: 20080929
  2. METHOTREXATE [Concomitant]
     Route: 065
     Dates: start: 20080929
  3. CORTANCYL [Concomitant]
     Route: 065
     Dates: start: 20080929
  4. CORTANCYL [Concomitant]
     Route: 065
     Dates: start: 20110509
  5. CORTANCYL [Concomitant]
     Route: 065
     Dates: start: 20111102

REACTIONS (7)
  - Parathyroid tumour benign [Not Recovered/Not Resolved]
  - Liver function test abnormal [Unknown]
  - Bacterial test positive [Recovered/Resolved]
  - Lymphopenia [Unknown]
  - Cystitis [Unknown]
  - Rhinitis [Recovered/Resolved]
  - Arthralgia [Unknown]
